FAERS Safety Report 4881912-1 (Version None)
Quarter: 2005Q4

REPORT INFORMATION
  Report Type: 
  Country: None (occurrence: None)
  Receive Date: 20051227
  Receipt Date: 20051208
  Transmission Date: 20060501
  Serious: Yes (Other)
  Sender: FDA-Public Use
  Company Number: US161961

PATIENT

DRUGS (1)
  1. ENBREL [Suspect]
     Indication: PSORIATIC ARTHROPATHY

REACTIONS (5)
  - ACRODERMATITIS [None]
  - ANTIPHOSPHOLIPID SYNDROME [None]
  - CONDITION AGGRAVATED [None]
  - CUTANEOUS SARCOIDOSIS [None]
  - PERIPHERAL ISCHAEMIA [None]
